FAERS Safety Report 21143072 (Version 1)
Quarter: 2022Q3

REPORT INFORMATION
  Report Type: Spontaneous
  Country: JP (occurrence: JP)
  Receive Date: 20220728
  Receipt Date: 20220728
  Transmission Date: 20221027
  Serious: Yes (Hospitalization, Other)
  Sender: FDA-Public Use
  Company Number: JP-PFIZER INC-202201007912

PATIENT

DRUGS (1)
  1. CORTRIL [Suspect]
     Active Substance: HYDROCORTISONE
     Dosage: 10 MG, DAILY (TAKEN AT SUPPER)
     Route: 048

REACTIONS (4)
  - Pyrexia [Unknown]
  - Heat illness [Unknown]
  - Adrenalectomy [Unknown]
  - Drug level decreased [Unknown]
